FAERS Safety Report 8564504-2 (Version None)
Quarter: 2012Q3

REPORT INFORMATION
  Report Type: 
  Country: None (occurrence: None)
  Receive Date: 20120803
  Receipt Date: 20120725
  Transmission Date: 20120928
  Serious: Yes (Hospitalization)
  Sender: FDA-Public Use
  Company Number: CA-BRISTOL-MYERS SQUIBB COMPANY-16794232

PATIENT
  Age: 58 Year
  Sex: Female

DRUGS (3)
  1. ERBITUX [Suspect]
     Indication: COLORECTAL CANCER
     Dosage: MOST RECENT DOSE ON 04APR12  INTERRUPTED  RESUMED ON 11JUL12, RECENT INF 25JUL12
     Route: 042
     Dates: start: 20120125
  2. SOLU-MEDROL [Concomitant]
     Indication: PREMEDICATION
  3. IMODIUM [Concomitant]

REACTIONS (2)
  - GLOSSITIS [None]
  - NEOPLASM [None]
